FAERS Safety Report 10615635 (Version 3)
Quarter: 2015Q2

REPORT INFORMATION
  Report Type: Spontaneous
  Country: US (occurrence: US)
  Receive Date: 20141201
  Receipt Date: 20150629
  Transmission Date: 20150821
  Serious: Yes (Life-Threatening, Hospitalization, Other)
  Sender: FDA-Public Use
  Company Number: US-ELI_LILLY_AND_COMPANY-US201411010654

PATIENT
  Age: 43 Year
  Sex: Male
  Weight: 81.17 kg

DRUGS (4)
  1. TESTIM [Suspect]
     Active Substance: TESTOSTERONE
     Indication: BLOOD TESTOSTERONE DECREASED
     Dosage: UNK UNK, QD
     Route: 065
  2. AXIRON [Suspect]
     Active Substance: TESTOSTERONE
     Indication: BLOOD TESTOSTERONE DECREASED
     Dosage: UNK UNK, QD
     Route: 065
  3. OXYCODONE [Concomitant]
     Active Substance: OXYCODONE
     Indication: PAIN
     Dosage: UNK
     Dates: start: 2004
  4. MORPHINE [Concomitant]
     Active Substance: MORPHINE
     Indication: PAIN
     Dosage: UNK
     Dates: start: 2001

REACTIONS (11)
  - Deep vein thrombosis [Unknown]
  - Thrombosis [Unknown]
  - Device occlusion [Unknown]
  - Thrombosis in device [Unknown]
  - Angiopathy [Unknown]
  - Lymphocele [Unknown]
  - Vein collapse [Unknown]
  - Coagulation time abnormal [Unknown]
  - Seroma [Unknown]
  - Pelvic venous thrombosis [Unknown]
  - Vascular compression [Unknown]

NARRATIVE: CASE EVENT DATE: 201205
